FAERS Safety Report 6668261-6 (Version None)
Quarter: 2010Q2

REPORT INFORMATION
  Report Type: 
  Country: None (occurrence: None)
  Receive Date: 20100405
  Receipt Date: 20100405
  Transmission Date: 20101027
  Serious: No
  Sender: FDA-Public Use
  Company Number: None

PATIENT

DRUGS (2)
  1. SYMBICORT [Suspect]
  2. QVAR 40 [Suspect]

REACTIONS (16)
  - ARTHRALGIA [None]
  - ARTHRITIS [None]
  - CONDITION AGGRAVATED [None]
  - CONTRAINDICATION TO MEDICAL TREATMENT [None]
  - DECREASED ACTIVITY [None]
  - DYSSTASIA [None]
  - FATIGUE [None]
  - GAIT DISTURBANCE [None]
  - GRIP STRENGTH DECREASED [None]
  - HYPERAESTHESIA [None]
  - MIDDLE INSOMNIA [None]
  - OEDEMA PERIPHERAL [None]
  - PRODUCT QUALITY ISSUE [None]
  - QUALITY OF LIFE DECREASED [None]
  - SJOGREN'S SYNDROME [None]
  - URTICARIA [None]
